FAERS Safety Report 4683244-3 (Version None)
Quarter: 2005Q2

REPORT INFORMATION
  Report Type: 
  Country: None (occurrence: None)
  Receive Date: 20050602
  Receipt Date: 20050202
  Transmission Date: 20051028
  Serious: No
  Sender: FDA-Public Use
  Company Number: USA050289788

PATIENT
  Sex: Female

DRUGS (1)
  1. CYMBALTA [Suspect]
     Indication: FIBROMYALGIA
     Dosage: 60 MG DAY
     Dates: start: 20050101

REACTIONS (3)
  - INSOMNIA [None]
  - PAIN [None]
  - SOMNOLENCE [None]
